FAERS Safety Report 11843465 (Version 2)
Quarter: 2015Q4

REPORT INFORMATION
  Report Type: Spontaneous
  Country: US (occurrence: US)
  Receive Date: 20151217
  Receipt Date: 20151217
  Transmission Date: 20160305
  Serious: No
  Sender: FDA-Public Use
  Company Number: US-HOSPIRA-2770963

PATIENT
  Age: 43 Year
  Sex: Male
  Weight: 103.5 kg

DRUGS (8)
  1. OXALIPLATIN. [Suspect]
     Active Substance: OXALIPLATIN
     Indication: CHEMOTHERAPY
     Dosage: 17 DOSES TOTAL
     Route: 042
     Dates: start: 20140304, end: 20150225
  2. DEXAMETHASONE. [Concomitant]
     Active Substance: DEXAMETHASONE
     Indication: PREMEDICATION
     Route: 042
     Dates: start: 20150304
  3. ALOXI [Concomitant]
     Active Substance: PALONOSETRON HYDROCHLORIDE
     Indication: PREMEDICATION
     Route: 042
     Dates: start: 20150304
  4. AVASTIN [Concomitant]
     Active Substance: BEVACIZUMAB
     Indication: ADJUVANT THERAPY
     Route: 042
     Dates: start: 20150304
  5. FLUOROURACIL. [Concomitant]
     Active Substance: FLUOROURACIL
     Indication: CHEMOTHERAPY
     Route: 042
     Dates: start: 20150304
  6. LORAZEPAM. [Concomitant]
     Active Substance: LORAZEPAM
     Indication: ANXIETY
     Route: 042
     Dates: start: 20150304
  7. OXALIPLATIN. [Suspect]
     Active Substance: OXALIPLATIN
     Indication: CHEMOTHERAPY
     Dosage: 17 DOSES TOTAL
     Route: 042
     Dates: start: 20140304, end: 20150225
  8. LEUCOVORIN                         /00566701/ [Concomitant]
     Active Substance: LEUCOVORIN
     Indication: ADJUVANT THERAPY
     Route: 042
     Dates: start: 20150304

REACTIONS (8)
  - Heart rate increased [Unknown]
  - Poor quality drug administered [Unknown]
  - Product quality issue [Unknown]
  - Dyspnoea [Unknown]
  - Chills [Unknown]
  - Blood pressure increased [Unknown]
  - Flushing [Unknown]
  - Nausea [Unknown]

NARRATIVE: CASE EVENT DATE: 20150225
